FAERS Safety Report 6433713-0 (Version None)
Quarter: 2009Q4

REPORT INFORMATION
  Report Type: 
  Country: None (occurrence: None)
  Receive Date: 20091110
  Receipt Date: 20091028
  Transmission Date: 20100525
  Serious: Yes (Life-Threatening, Hospitalization, Disabling)
  Sender: FDA-Public Use
  Company Number: SE-BAYER-200937561GPV

PATIENT
  Age: 17 Year
  Sex: Female

DRUGS (5)
  1. DROSPIRENONE AND EHTINYL ESTRADIOL [Suspect]
     Indication: CONTRACEPTION
     Route: 048
  2. DESOLETT [Suspect]
     Indication: CONTRACEPTION
  3. DESOGESTREL AND ETHINYL ESTRADIOL [Suspect]
     Indication: CONTRACEPTION
  4. CILEST [Suspect]
     Indication: CONTRACEPTION
  5. TRIMIRON [Suspect]
     Indication: CONTRACEPTION

REACTIONS (7)
  - CARDIAC ARREST [None]
  - OEDEMA PERIPHERAL [None]
  - PAIN IN EXTREMITY [None]
  - PULMONARY EMBOLISM [None]
  - SKIN DISCOLOURATION [None]
  - SYNCOPE [None]
  - THROMBOSIS [None]
